FAERS Safety Report 17465864 (Version 3)
Quarter: 2025Q2

REPORT INFORMATION
  Report Type: Spontaneous
  Country: US (occurrence: US)
  Receive Date: 20200227
  Receipt Date: 20250516
  Transmission Date: 20250716
  Serious: No
  Sender: COHERUS
  Company Number: US-COHERUS BIOSCIENCES, INC-2020US000476

PATIENT

DRUGS (5)
  1. UDENYCA [Suspect]
     Active Substance: PEGFILGRASTIM-CBQV
     Indication: White blood cell count increased
     Route: 058
     Dates: start: 20200118
  2. VINCRISTINE [Concomitant]
     Active Substance: VINCRISTINE
     Indication: Lymphoma
     Dates: start: 20200115
  3. RITUXIMAB [Concomitant]
     Active Substance: RITUXIMAB
     Indication: Lymphoma
     Dates: start: 20200115
  4. CYTOXAN [Concomitant]
     Active Substance: CYCLOPHOSPHAMIDE
     Indication: Lymphoma
     Dates: start: 20200115
  5. ETOPOSIDE [Concomitant]
     Active Substance: ETOPOSIDE
     Indication: Lymphoma
     Dates: start: 20200115

REACTIONS (1)
  - Pain [Recovered/Resolved]

NARRATIVE: CASE EVENT DATE: 20200118
